FAERS Safety Report 20866771 (Version 2)
Quarter: 2022Q3

REPORT INFORMATION
  Report Type: Spontaneous
  Country: US (occurrence: None)
  Receive Date: 20220524
  Receipt Date: 20220721
  Transmission Date: 20221027
  Serious: Yes (Other)
  Sender: FDA-Public Use
  Company Number: US-ROCHE-3100620

PATIENT
  Age: 53 Year
  Sex: Male
  Weight: 80.812 kg

DRUGS (2)
  1. OCREVUS [Suspect]
     Active Substance: OCRELIZUMAB
     Indication: Primary progressive multiple sclerosis
     Dosage: DOSE WAS UNKNOWN ;ONGOING: UNKNOWN?MOST RECENT DOSE OF OCRELIZUMAB WAS ON FEB/2022
     Route: 042
     Dates: start: 202001
  2. TADALAFIL [Concomitant]
     Active Substance: TADALAFIL
     Indication: Erectile dysfunction
     Dosage: OCCASIONALLY TAKES ;ONGOING: UNKNOWN

REACTIONS (10)
  - Cerebrovascular accident [Unknown]
  - Multiple sclerosis relapse [Unknown]
  - Flashback [Unknown]
  - Pain [Unknown]
  - Fall [Unknown]
  - Urinary incontinence [Unknown]
  - Anal incontinence [Unknown]
  - Movement disorder [Recovered/Resolved]
  - Hypersomnia [Unknown]
  - Weight increased [Not Recovered/Not Resolved]

NARRATIVE: CASE EVENT DATE: 20220301
